FAERS Safety Report 9412503 (Version 3)
Quarter: 2013Q3

REPORT INFORMATION
  Report Type: Spontaneous
  Country: GB (occurrence: None)
  Receive Date: 20130701
  Receipt Date: 20130801
  Transmission Date: 20140515
  Serious: Yes (Hospitalization)
  Sender: FDA-Public Use
  Company Number: DKLU1091235

PATIENT
  Age: 3 Year
  Sex: Male
  Weight: 16.1 kg

DRUGS (24)
  1. COSMEGEN [Suspect]
     Indication: NEOPLASM MALIGNANT
     Dosage: LAST DOSE PRIOR TO SAE ON 04/MAY/2013 (1 MG, 1 IN 1 D), INTRAVENOUS BOLUS
     Route: 040
     Dates: start: 20130504
  2. VINCRISTINE (VINCRISTINE) (VINCRISTINE) [Suspect]
     Indication: NEOPLASM MALIGNANT
     Dosage: LAST DOSE PRIOR TO SAE ON 07/JUN/2013 (2 MG, 1 IN 1 D), INTRAVENOUS BOLUS?
     Route: 040
     Dates: start: 20130504
  3. IFOSFAMIDE [Suspect]
     Indication: NEOPLASM MALIGNANT
     Dosage: LLAST DOSE PRIOR TO SAE: 05/MAY/2013 (2 MG, 1 IN 1 D)
     Route: 040
     Dates: start: 20130504
  4. DOXORUBICIN (DOXORUBICIN) (DOXORUBICIN) [Suspect]
     Indication: NEOPLASM MALIGNANT
     Dosage: LLAST DOSE PRIOR TO SAE: 05/MAY/2013 (2 MG, 1 IN 1 D), INTRAVENOUS BOLUS
     Route: 040
     Dates: start: 20130504
  5. BEVACIZUMAB [Suspect]
     Indication: NEOPLASM MALIGNANT
     Dosage: LAST DOSE OF DOSE PRIOR TO SAE ON 24/MAY/2013 (120 MG/ONCE), INTRAVENOUS (NOT OTHERWISE SPECIFIED)
     Route: 042
     Dates: start: 20130524
  6. MESNA [Suspect]
     Indication: NEOPLASM MALIGNANT
     Dosage: LAST DOSE PRIOR TO SAE ON 24/MAY/2013. (2450 MG, DAILY) (***), INTRAVENOUS (NOT OTHERWISE SPECIFIED)?
     Route: 042
     Dates: start: 20130524
  7. ONDANSETRON (ONDANSETRON) (ONDANSETRON) [Concomitant]
  8. DEXAMETHASONE (DEXAMETHASONE) (DEXAMETHASONE) [Concomitant]
  9. METOCLOPRAMIDE (METOCLOPRAMIDE) (METOCLOPRAMIDE) [Concomitant]
  10. PANTOPRAZOLE (PANTOPRAZOLE) (PANTOPRAZOLE) [Concomitant]
  11. LEVOMEPROMAZINE (LEVOMEPROMAZINE) (LEVOMEPROMAZINE)? [Concomitant]
  12. PARACETAMOL (PARACETAMOL) (PARACETAMOL)? [Concomitant]
  13. TAZOCIN (PIP/TAZO) PIPERACILLIN SODIUM, TAZOBACTAM SODIUM) [Concomitant]
  14. ALL OTHER THERAPEUTIC PRODUCTS (ALL OTHER THERAPEUTIC PRODUCTS) [Concomitant]
  15. MOVICOL (MOVICOL /01749801) [Concomitant]
  16. DOMPERIDONE (DOMPERIDONE) (DOMPERIDONE) [Concomitant]
  17. SENNA (SENNA ALEXANDRINA) (SENNA ALEXANDRINA)? [Concomitant]
  18. ORAMORPH (MORPHINE SULFATE) (MORPHINE SULFATE) [Concomitant]
  19. RANITIDIN (RANITIDINE HYDROCHLORIDE) (RANITIDINE HYDROCHLORIDE)? [Concomitant]
  20. OMEPRAZOLE (OMEPRAZOLE) (OMEPRZOLE) [Concomitant]
  21. OXYGEN (OXYGEN) (OXYGEN) [Concomitant]
  22. LACTULOS (LACTULOSE) (LACTULOSE) [Concomitant]
  23. NOZINAN (LEVOMEPROMAZINE) (LEVOMEPROMAZINE) [Concomitant]
  24. BUSCOPAN (HYOSCINE BUTYLBROMIDE) (HYOSCINE BUTYLBROMIDE) [Concomitant]

REACTIONS (9)
  - Pleural effusion [None]
  - Febrile neutropenia [None]
  - Hypophagia [None]
  - Weight decreased [None]
  - Vomiting [None]
  - Hypophagia [None]
  - Respiratory distress [None]
  - Haemoglobin decreased [None]
  - Diarrhoea [None]
